FAERS Safety Report 14975408 (Version 5)
Quarter: 2025Q4

REPORT INFORMATION
  Report Type: Spontaneous
  Country: EU (occurrence: EU)
  Receive Date: 20180605
  Receipt Date: 20251222
  Transmission Date: 20260117
  Serious: Yes (Hospitalization, Other)
  Sender: MYLAN
  Company Number: None

PATIENT
  Age: 54 Year
  Sex: Female

DRUGS (24)
  1. ZOLEDRONIC ACID [Suspect]
     Active Substance: ZOLEDRONIC ACID
     Indication: Metastases to bone
     Dosage: 1 DOSAGE FORM, CYCLE (1 IN 1 CYCLICAL)
  2. ZOLEDRONIC ACID [Suspect]
     Active Substance: ZOLEDRONIC ACID
     Indication: Invasive ductal breast carcinoma
  3. NOVANTRONE [Suspect]
     Active Substance: MITOXANTRONE HYDROCHLORIDE
     Indication: Invasive ductal breast carcinoma
     Dosage: 1 DOSAGE FORM, CYCLE (1 IN 1 CYCLICAL)
  4. CARBOPLATIN [Suspect]
     Active Substance: CARBOPLATIN
     Indication: Metastases to bone
     Dosage: 1 DOSAGE FORM, CYCLE (1 IN 1 CYCLICAL)
  5. CARBOPLATIN [Suspect]
     Active Substance: CARBOPLATIN
     Indication: Invasive ductal breast carcinoma
  6. DOXORUBICIN HYDROCHLORIDE [Suspect]
     Active Substance: DOXORUBICIN HYDROCHLORIDE
     Indication: Metastases to bone
     Dosage: 1 DOSAGE FORM, CYCLE (1 IN 1 CYCLICAL)
     Route: 061
  7. DOXORUBICIN HYDROCHLORIDE [Suspect]
     Active Substance: DOXORUBICIN HYDROCHLORIDE
     Indication: Invasive ductal breast carcinoma
  8. CAPECITABINE [Suspect]
     Active Substance: CAPECITABINE
     Indication: Invasive ductal breast carcinoma
     Dosage: 1 DOSAGE FORM, CYCLE (1 IN 1 CYCLICAL)
  9. PACLITAXEL [Suspect]
     Active Substance: PACLITAXEL
     Indication: Invasive ductal breast carcinoma
     Dosage: 1 DOSAGE FORM, CYCLE (1 IN 1 CYCLICAL)
  10. CYCLOPHOSPHAMIDE [Suspect]
     Active Substance: CYCLOPHOSPHAMIDE
     Indication: Invasive ductal breast carcinoma
     Dosage: 1 DOSAGE FORM, CYCLE (1 IN 1 CYCLICAL)
  11. FLUOROURACIL [Suspect]
     Active Substance: FLUOROURACIL
     Indication: Invasive ductal breast carcinoma
     Dosage: 1 DOSAGE FORM, CYCLE (1 IN 1 CYCLICAL)
  12. DOCETAXEL [Suspect]
     Active Substance: DOCETAXEL
     Indication: Metastases to bone
     Dosage: 1 DOSAGE FORM, CYCLE (1 IN 1 CYCLICAL)
  13. DOCETAXEL [Suspect]
     Active Substance: DOCETAXEL
     Indication: Invasive ductal breast carcinoma
  14. GEMCITABINE [Suspect]
     Active Substance: GEMCITABINE
     Indication: Metastases to bone
     Dosage: 1 DOSAGE FORM, CYCLE (1 IN 1 CYCLICAL)
  15. GEMCITABINE [Suspect]
     Active Substance: GEMCITABINE
     Indication: Invasive ductal breast carcinoma
     Dosage: UNK
  16. BEVACIZUMAB [Suspect]
     Active Substance: BEVACIZUMAB
     Indication: Metastases to bone
     Dosage: 1 DOSAGE FORM, CYCLE (1 IN 1 CYCLICAL)
  17. BEVACIZUMAB [Suspect]
     Active Substance: BEVACIZUMAB
     Indication: Invasive ductal breast carcinoma
  18. VINORELBINE [Suspect]
     Active Substance: VINORELBINE TARTRATE
     Indication: Metastases to bone
     Dosage: 1 DOSAGE FORM, CYCLE (1 IN 1 CYCLICAL)
  19. VINORELBINE [Suspect]
     Active Substance: VINORELBINE TARTRATE
     Indication: Invasive ductal breast carcinoma
  20. INIPARIB [Suspect]
     Active Substance: INIPARIB
     Indication: Metastases to bone
     Dosage: 1 DOSAGE FORM, CYCLE (1 IN 1 CYCLICAL)
  21. INIPARIB [Suspect]
     Active Substance: INIPARIB
     Indication: Invasive ductal breast carcinoma
  22. ERIBULIN [Suspect]
     Active Substance: ERIBULIN
     Indication: Metastases to bone
     Dosage: 1 DOSAGE FORM, CYCLE (1 IN 1 CYCLICAL)
  23. ERIBULIN [Suspect]
     Active Substance: ERIBULIN
     Indication: Invasive ductal breast carcinoma
  24. LETROZOLE [Concomitant]
     Active Substance: LETROZOLE
     Indication: Metastases to bone
     Dosage: UNK

REACTIONS (10)
  - Malignant neoplasm progression [Unknown]
  - Invasive ductal breast carcinoma [Unknown]
  - Metastases to bone marrow [Unknown]
  - Bone marrow infiltration [Unknown]
  - Disease progression [Unknown]
  - Anaemia [Unknown]
  - Thrombocytopenia [Unknown]
  - Product use in unapproved indication [Unknown]
  - Medication error [Unknown]
  - Intentional product misuse [Unknown]

NARRATIVE: CASE EVENT DATE: 20080101
